FAERS Safety Report 21616864 (Version 2)
Quarter: 2023Q1

REPORT INFORMATION
  Report Type: Spontaneous
  Country: CN (occurrence: CN)
  Receive Date: 20221118
  Receipt Date: 20230111
  Transmission Date: 20230417
  Serious: Yes (Disabling, Other)
  Sender: FDA-Public Use
  Company Number: CN-PFIZER INC-PV202200102367

PATIENT
  Sex: Male

DRUGS (6)
  1. AVIBACTAM SODIUM\CEFTAZIDIME [Suspect]
     Active Substance: AVIBACTAM SODIUM\CEFTAZIDIME
     Indication: Infection
     Dosage: UNK
     Dates: start: 20221102
  2. TYGACIL [Suspect]
     Active Substance: TIGECYCLINE
     Indication: Anti-infective therapy
     Dosage: 50 MG, BID
     Route: 041
     Dates: start: 20221102, end: 20221108
  3. LINEZOLID [Suspect]
     Active Substance: LINEZOLID
     Indication: Abdominal infection
     Dosage: UNK
     Dates: start: 20221101, end: 20221104
  4. ALBUMIN HUMAN [Concomitant]
     Active Substance: ALBUMIN HUMAN
  5. MEROPENEM [Concomitant]
     Active Substance: MEROPENEM
     Indication: Pneumonia
  6. POLYMYXIN [Concomitant]
     Active Substance: POLYMYXIN
     Indication: Pneumonia

REACTIONS (5)
  - Blood bilirubin increased [Unknown]
  - Bilirubin conjugated increased [Unknown]
  - Drug resistance [Unknown]
  - Pyrexia [Unknown]
  - Platelet count decreased [Unknown]

NARRATIVE: CASE EVENT DATE: 20221101
